FAERS Safety Report 9343352 (Version 1)
Quarter: 2013Q2

REPORT INFORMATION
  Report Type: Spontaneous
  Country: CO (occurrence: CO)
  Receive Date: 20130612
  Receipt Date: 20130612
  Transmission Date: 20140414
  Serious: Yes (Other)
  Sender: FDA-Public Use
  Company Number: CO-MERCK-1306COL003938

PATIENT
  Age: 24 Year
  Sex: Male

DRUGS (1)
  1. PEG-INTRON [Suspect]
     Indication: HEPATITIS C
     Dosage: PREFILLED PENS, QW
     Route: 058
     Dates: start: 20130504, end: 20130605

REACTIONS (1)
  - Aneurysm ruptured [Unknown]
